FAERS Safety Report 4936713-2 (Version None)
Quarter: 2006Q1

REPORT INFORMATION
  Report Type: 
  Country: None (occurrence: None)
  Receive Date: 20060302
  Receipt Date: 20060214
  Transmission Date: 20060701
  Serious: Yes (Other)
  Sender: FDA-Public Use
  Company Number: FR200601001192

PATIENT
  Age: 16 Year
  Sex: Male

DRUGS (4)
  1. ZYPREXA [Suspect]
     Indication: BRIEF PSYCHOTIC DISORDER WITH MARKED STRESSORS
     Dosage: 15 MG, DAILY (1/D), ORAL ; 20 MG,DAILY (1/D), ORAL
     Route: 048
     Dates: start: 20051128, end: 20051229
  2. ZYPREXA [Suspect]
     Indication: BRIEF PSYCHOTIC DISORDER WITH MARKED STRESSORS
     Dosage: 15 MG, DAILY (1/D), ORAL ; 20 MG,DAILY (1/D), ORAL
     Route: 048
     Dates: start: 20051230
  3. STILNOX /FRA/ (ZOLPIDEM) [Concomitant]
  4. XANAX /USA/ (ALPRAZOLAM) [Concomitant]

REACTIONS (2)
  - NEUTROPENIA [None]
  - WHITE BLOOD CELL COUNT DECREASED [None]
